FAERS Safety Report 7097308-0 (Version None)
Quarter: 2010Q4

REPORT INFORMATION
  Report Type: 
  Country: None (occurrence: None)
  Receive Date: 20101103
  Receipt Date: 20101021
  Transmission Date: 20110411
  Serious: Yes (Other)
  Sender: FDA-Public Use
  Company Number: 020925

PATIENT
  Sex: Female
  Weight: 3.6 kg

DRUGS (9)
  1. KEPPRA [Suspect]
     Indication: EPILEPSY
     Dosage: (500 MG BID) (500 MG QD) (750 MG BID) (750 MG TID)
     Route: 064
     Dates: start: 20100101, end: 20100101
  2. KEPPRA [Suspect]
     Indication: EPILEPSY
     Dosage: (500 MG BID) (500 MG QD) (750 MG BID) (750 MG TID)
     Route: 064
     Dates: start: 20100222, end: 20100321
  3. KEPPRA [Suspect]
     Indication: EPILEPSY
     Dosage: (500 MG BID) (500 MG QD) (750 MG BID) (750 MG TID)
     Route: 064
     Dates: start: 20100322, end: 20100823
  4. KEPPRA [Suspect]
     Indication: EPILEPSY
     Dosage: (500 MG BID) (500 MG QD) (750 MG BID) (750 MG TID)
     Route: 064
     Dates: start: 20100906
  5. DILANTIN [Concomitant]
  6. PRENATAL VITAMINS /01549301/ [Concomitant]
  7. TYLENOL (CAPLET) [Concomitant]
  8. MOTRIN [Concomitant]
  9. PERMETHRIN [Concomitant]

REACTIONS (3)
  - CARDIAC MURMUR [None]
  - CONVULSION [None]
  - MATERNAL DRUGS AFFECTING FOETUS [None]
